FAERS Safety Report 24951253 (Version 1)
Quarter: 2025Q1

REPORT INFORMATION
  Report Type: Spontaneous
  Country: SK (occurrence: SK)
  Receive Date: 20250210
  Receipt Date: 20250210
  Transmission Date: 20250409
  Serious: Yes (Hospitalization)
  Sender: ABBVIE
  Company Number: SK-ABBVIE-6122617

PATIENT
  Age: 52 Year
  Sex: Female

DRUGS (2)
  1. RISANKIZUMAB [Suspect]
     Active Substance: RISANKIZUMAB
     Indication: Psoriasis
     Route: 058
     Dates: start: 202312
  2. SULFASALAZINE [Concomitant]
     Active Substance: SULFASALAZINE
     Indication: Psoriatic arthropathy
     Route: 048
     Dates: start: 202201

REACTIONS (5)
  - Eczema [Unknown]
  - Hyperkeratosis [Unknown]
  - Skin fissures [Unknown]
  - External ear inflammation [Unknown]
  - Rash macular [Unknown]

NARRATIVE: CASE EVENT DATE: 20240301
